FAERS Safety Report 24454245 (Version 2)
Quarter: 2024Q4

REPORT INFORMATION
  Report Type: Report from Study
  Country: US (occurrence: US)
  Receive Date: 20241017
  Receipt Date: 20241018
  Transmission Date: 20250115
  Serious: No
  Sender: ROCHE
  Company Number: US-ROCHE-3462594

PATIENT
  Age: 40 Year
  Sex: Female

DRUGS (11)
  1. RITUXAN [Suspect]
     Active Substance: RITUXIMAB
     Indication: Encephalitis
     Route: 041
  2. RITUXAN [Suspect]
     Active Substance: RITUXIMAB
     Indication: Encephalomyelitis
  3. TRULICITY [Concomitant]
     Active Substance: DULAGLUTIDE
  4. ERGOCALCIFEROL [Concomitant]
     Active Substance: ERGOCALCIFEROL
     Route: 048
  5. FERROUS SULFATE [Concomitant]
     Active Substance: FERROUS SULFATE
  6. NOVOLOG [Concomitant]
     Active Substance: INSULIN ASPART
  7. LO LOESTRIN FE [Concomitant]
     Active Substance: ETHINYL ESTRADIOL\NORETHINDRONE ACETATE
  8. PREGABALIN [Concomitant]
     Active Substance: PREGABALIN
  9. ROSUVASTATIN [Concomitant]
     Active Substance: ROSUVASTATIN
  10. SERTRALINE [Concomitant]
     Active Substance: SERTRALINE HYDROCHLORIDE
  11. ZINC-220 [Concomitant]

REACTIONS (2)
  - Off label use [Unknown]
  - No adverse event [Unknown]
